FAERS Safety Report 8495102-7 (Version None)
Quarter: 2012Q3

REPORT INFORMATION
  Report Type: 
  Country: None (occurrence: None)
  Receive Date: 20120709
  Receipt Date: 20120702
  Transmission Date: 20120928
  Serious: Yes (Hospitalization, Other)
  Sender: FDA-Public Use
  Company Number: US-JNJFOC-20120701732

PATIENT
  Sex: Female

DRUGS (1)
  1. DOXORUBICIN HCL [Suspect]
     Indication: OVARIAN CANCER
     Route: 042
     Dates: start: 20120612

REACTIONS (6)
  - DECUBITUS ULCER [None]
  - INTESTINAL OBSTRUCTION [None]
  - OEDEMA PERIPHERAL [None]
  - FATIGUE [None]
  - KIDNEY INFECTION [None]
  - SEPSIS [None]
